FAERS Safety Report 8499163-0 (Version None)
Quarter: 2012Q2

REPORT INFORMATION
  Report Type: 
  Country: None (occurrence: None)
  Receive Date: 20120627
  Receipt Date: 20120612
  Transmission Date: 20120825
  Serious: Yes (Death, Hospitalization)
  Sender: FDA-Public Use
  Company Number: TCI2012A01145

PATIENT
  Age: 70 Year
  Sex: Male

DRUGS (6)
  1. LANSOPRAZOLE [Suspect]
     Dosage: 30 MG (15 MG, 2 IN 1 D), PER ORAL
     Route: 048
     Dates: start: 20120221, end: 20120222
  2. LANSOPRAZOLE [Suspect]
     Dosage: 30 MG (15 MG, 2 IN 1 D), PER ORAL
     Route: 048
     Dates: start: 20120301
  3. PREVPAC [Suspect]
     Indication: HELICOBACTER INFECTION
     Dosage: 1 CARD (0.5 CAR-2 IN 1 D) PER ORAL
     Route: 048
     Dates: start: 20120223, end: 20120223
  4. FERROMIA (FERROUS SODIUM CITRATE) [Concomitant]
  5. MIYA-BM (CLOSTRIDIUM BUTYRICUM) [Concomitant]
  6. LOPERAMIDE HCL [Concomitant]

REACTIONS (6)
  - DIARRHOEA [None]
  - ALANINE AMINOTRANSFERASE INCREASED [None]
  - DISSEMINATED INTRAVASCULAR COAGULATION [None]
  - CARDIO-RESPIRATORY ARREST [None]
  - AGRANULOCYTOSIS [None]
  - ASPARTATE AMINOTRANSFERASE INCREASED [None]
